FAERS Safety Report 5006266-1 (Version None)
Quarter: 2006Q2

REPORT INFORMATION
  Report Type: 
  Country: None (occurrence: None)
  Receive Date: 20060516
  Receipt Date: 20060504
  Transmission Date: 20061013
  Serious: Yes (Hospitalization)
  Sender: FDA-Public Use
  Company Number: VISP-PR-0604S-0223

PATIENT
  Age: 82 Year
  Sex: Female
  Weight: 68.0396 kg

DRUGS (2)
  1. VISIPAQUE [Suspect]
     Indication: ABDOMINAL PAIN
     Dosage: SINGLE DOSE, EXTRAVASATION
     Dates: start: 20060328, end: 20060328
  2. PIP/TAZO (ZOSYN) [Concomitant]

REACTIONS (4)
  - ABDOMINAL PAIN [None]
  - INJECTION SITE NECROSIS [None]
  - INJECTION SITE OEDEMA [None]
  - INTESTINAL MASS [None]
